FAERS Safety Report 6885285-4 (Version None)
Quarter: 2010Q3

REPORT INFORMATION
  Report Type: 
  Country: None (occurrence: None)
  Receive Date: 20100729
  Receipt Date: 20100729
  Transmission Date: 20110219
  Serious: Yes (Hospitalization)
  Sender: FDA-Public Use
  Company Number: None

PATIENT
  Age: 47 Year
  Weight: 135.6255 kg

DRUGS (1)
  1. ENBREL [Suspect]
     Indication: PSORIASIS
     Dates: start: 20060501, end: 20060701

REACTIONS (10)
  - ASTHENIA [None]
  - CERVICAL VERTEBRAL FRACTURE [None]
  - CLAVICLE FRACTURE [None]
  - FACIAL BONES FRACTURE [None]
  - FALL [None]
  - IMPAIRED WORK ABILITY [None]
  - LACERATION [None]
  - MULTIPLE INJURIES [None]
  - RHEUMATOID ARTHRITIS [None]
  - THORACIC VERTEBRAL FRACTURE [None]
